FAERS Safety Report 6357191-5 (Version None)
Quarter: 2009Q3

REPORT INFORMATION
  Report Type: 
  Country: None (occurrence: None)
  Receive Date: 20090911
  Receipt Date: 20090828
  Transmission Date: 20100115
  Serious: Yes (Other)
  Sender: FDA-Public Use
  Company Number: SPV1-2009-01781

PATIENT
  Age: 31 Year
  Sex: Male

DRUGS (3)
  1. ADDERALL XR 10 [Suspect]
     Dosage: 5 MG
     Dates: start: 20090824
  2. AVELOX [Suspect]
     Indication: SINUSITIS
     Dosage: 400 MG
     Dates: start: 20090824
  3. ZITHROMAX [Concomitant]

REACTIONS (6)
  - BLINDNESS TRANSIENT [None]
  - BLOOD PRESSURE DECREASED [None]
  - ERYTHEMA [None]
  - PARAESTHESIA ORAL [None]
  - SWELLING FACE [None]
  - SYNCOPE [None]
